FAERS Safety Report 7540124-3 (Version None)
Quarter: 2011Q2

REPORT INFORMATION
  Report Type: 
  Country: None (occurrence: None)
  Receive Date: 20110610
  Receipt Date: 20110531
  Transmission Date: 20111010
  Serious: Yes (Other)
  Sender: FDA-Public Use
  Company Number: US-BAYER-2010-003097

PATIENT
  Age: 47 Year
  Sex: Female
  Weight: 70.748 kg

DRUGS (9)
  1. YAZ [Suspect]
     Indication: ORAL CONTRACEPTION
     Dosage: UNK
     Route: 048
     Dates: start: 20070706, end: 20081205
  2. ANTIBIOTICS [Concomitant]
  3. PROMETHAZINE [Concomitant]
  4. UNKNOWN OVER THE COUNTER MEDICATION [Concomitant]
     Indication: MULTIPLE ALLERGIES
     Dosage: UNK
     Dates: start: 20060101
  5. ZYRTEC [Concomitant]
  6. NSAID'S [Concomitant]
  7. GABAPENTIN [Concomitant]
     Dosage: UNK
     Dates: start: 20080501
  8. PROZAC [Concomitant]
  9. PROTONIX [Concomitant]
     Indication: GASTROOESOPHAGEAL REFLUX DISEASE
     Dosage: UNK
     Dates: start: 20000101

REACTIONS (6)
  - CHOLELITHIASIS [None]
  - ABDOMINAL PAIN UPPER [None]
  - PAIN [None]
  - CHOLECYSTITIS [None]
  - GALLBLADDER DISORDER [None]
  - POSTOPERATIVE HERNIA [None]
